FAERS Safety Report 19385229 (Version 3)
Quarter: 2021Q3

REPORT INFORMATION
  Report Type: Spontaneous
  Country: JP (occurrence: JP)
  Receive Date: 20210607
  Receipt Date: 20210712
  Transmission Date: 20211014
  Serious: Yes (Other)
  Sender: FDA-Public Use
  Company Number: JP-FERRINGPH-2021FE03553

PATIENT
  Sex: Male
  Weight: 2.66 kg

DRUGS (4)
  1. SODIUM PICOSULFATE [Concomitant]
     Active Substance: SODIUM PICOSULFATE
     Route: 064
  2. PROPESS [Suspect]
     Active Substance: DINOPROSTONE
     Indication: INDUCTION OF CERVIX RIPENING
     Dosage: UNK
     Route: 064
  3. RITODRINE [Concomitant]
     Active Substance: RITODRINE
     Indication: PREMATURE LABOUR
     Route: 064
  4. SODIUM PICOSULFATE [Concomitant]
     Active Substance: SODIUM PICOSULFATE
     Indication: CONSTIPATION
     Route: 064

REACTIONS (2)
  - Metabolic acidosis [Recovered/Resolved]
  - Foetal heart rate deceleration abnormality [Recovered/Resolved]
